FAERS Safety Report 19430508 (Version 1)
Quarter: 2021Q2

REPORT INFORMATION
  Report Type: Spontaneous
  Country: US (occurrence: US)
  Receive Date: 20210617
  Receipt Date: 20210617
  Transmission Date: 20210717
  Serious: Yes (Other)
  Sender: FDA-Public Use
  Company Number: US-KALA PHARAMACEUTICALS-2021KLA00057

PATIENT
  Age: 81 Year
  Sex: Male
  Weight: 103 kg

DRUGS (6)
  1. EYSUVIS [Suspect]
     Active Substance: LOTEPREDNOL ETABONATE
     Indication: FOREIGN BODY SENSATION IN EYES
  2. SILDENAFIL. [Concomitant]
     Active Substance: SILDENAFIL
     Dosage: TAKE 1 TABLET (20 MG) DAILY AS NEEDED (1 TO 5 TABLETS DAILY AS DIRECTED, NO MORE THAN 5 TABS IN 24/H
     Route: 048
  3. EYSUVIS [Suspect]
     Active Substance: LOTEPREDNOL ETABONATE
     Indication: OCULAR HYPERAEMIA
  4. ALFUZOSIN [Concomitant]
     Active Substance: ALFUZOSIN
     Dosage: 10 MG, 1X/DAY
     Route: 048
  5. EYSUVIS [Suspect]
     Active Substance: LOTEPREDNOL ETABONATE
     Indication: EYE IRRITATION
  6. EYSUVIS [Suspect]
     Active Substance: LOTEPREDNOL ETABONATE
     Indication: DRY EYE
     Dosage: 1 GTT IN BOTH EYES
     Route: 047
     Dates: start: 20210602, end: 20210603

REACTIONS (1)
  - Eyelid margin crusting [Recovering/Resolving]

NARRATIVE: CASE EVENT DATE: 20210603
